FAERS Safety Report 5364817-1 (Version None)
Quarter: 2007Q2

REPORT INFORMATION
  Report Type: 
  Country: None (occurrence: None)
  Receive Date: 20070621
  Receipt Date: 20070614
  Transmission Date: 20071010
  Serious: Yes (Hospitalization)
  Sender: FDA-Public Use
  Company Number: PHNU2007DE02134

PATIENT
  Age: 78 Year
  Sex: Female
  Weight: 75 kg

DRUGS (1)
  1. PROVAS 160 MAXX [Suspect]
     Indication: ESSENTIAL HYPERTENSION
     Dosage: 160 MG, BID
     Route: 048
     Dates: start: 20061129, end: 20061213

REACTIONS (3)
  - BLOOD PRESSURE INADEQUATELY CONTROLLED [None]
  - HYPOTENSION [None]
  - LEFT VENTRICULAR FAILURE [None]
